FAERS Safety Report 13269849 (Version 1)
Quarter: 2017Q1

REPORT INFORMATION
  Report Type: Report from Study
  Country: US (occurrence: US)
  Receive Date: 20170224
  Receipt Date: 20170224
  Transmission Date: 20170428
  Serious: Yes (Other)
  Sender: FDA-Public Use
  Company Number: US-BAYER-2017-011239

PATIENT
  Age: 60 Year
  Sex: Male

DRUGS (3)
  1. NEXAVAR [Suspect]
     Active Substance: SORAFENIB
     Indication: HEPATOCELLULAR CARCINOMA
     Dosage: 200 MG, QD
     Route: 048
  2. NEXAVAR [Suspect]
     Active Substance: SORAFENIB
     Indication: HEPATOCELLULAR CARCINOMA
     Dosage: 400 MG, BID
     Route: 048
     Dates: start: 20161108
  3. NEXAVAR [Suspect]
     Active Substance: SORAFENIB
     Indication: HEPATOCELLULAR CARCINOMA
     Dosage: 400 MG, BID
     Route: 048
     Dates: start: 20161103

REACTIONS (16)
  - Skin injury [None]
  - Fatigue [None]
  - Rash [None]
  - Surgery [None]
  - Skin abrasion [None]
  - Skin ulcer [None]
  - Diarrhoea [None]
  - Erythema [None]
  - Rash erythematous [None]
  - Palmar-plantar erythrodysaesthesia syndrome [None]
  - Peripheral swelling [None]
  - Intentional product use issue [None]
  - Pain in extremity [None]
  - Bone pain [None]
  - Musculoskeletal pain [None]
  - Impaired healing [None]

NARRATIVE: CASE EVENT DATE: 201611
